FAERS Safety Report 20906776 (Version 1)
Quarter: 2022Q2

REPORT INFORMATION
  Report Type: Report from Study
  Country: EG (occurrence: EG)
  Receive Date: 20220602
  Receipt Date: 20220602
  Transmission Date: 20220720
  Serious: Yes (Other)
  Sender: FDA-Public Use
  Company Number: EG-NOVARTISPH-NVSC2022EG123622

PATIENT
  Age: 53 Year
  Sex: Female

DRUGS (4)
  1. KISQALI [Suspect]
     Active Substance: RIBOCICLIB
     Indication: Breast cancer metastatic
     Dosage: 200 MG, QD, (3 TABLET PER DAY)
     Route: 048
     Dates: start: 202108
  2. KISQALI [Suspect]
     Active Substance: RIBOCICLIB
     Indication: Metastases to lymph nodes
  3. FASLODEX [Concomitant]
     Active Substance: FULVESTRANT
     Indication: Chemotherapy
     Dosage: UNK, (PREVIOUSLY EVERY 15 DAYS AND NOW 2 SYRINGE EVERY ONE MONTH)
     Route: 065
  4. FASLODEX [Concomitant]
     Active Substance: FULVESTRANT
     Indication: Radiotherapy

REACTIONS (10)
  - Dermatitis [Not Recovered/Not Resolved]
  - Pain of skin [Not Recovered/Not Resolved]
  - Breast atrophy [Not Recovered/Not Resolved]
  - Wound [Not Recovered/Not Resolved]
  - Breast cancer metastatic [Not Recovered/Not Resolved]
  - Metastases to lymph nodes [Not Recovered/Not Resolved]
  - Metastases to neck [Not Recovered/Not Resolved]
  - Malignant neoplasm progression [Not Recovered/Not Resolved]
  - Breast induration [Unknown]
  - Breast discolouration [Unknown]

NARRATIVE: CASE EVENT DATE: 20220101
